FAERS Safety Report 8876518 (Version 1)
Quarter: 2012Q4

REPORT INFORMATION
  Report Type: 
  Country: ZA (occurrence: ZA)
  Receive Date: 20121031
  Receipt Date: 20121031
  Transmission Date: 20130627
  Serious: Yes (Death, Other)
  Sender: FDA-Public Use
  Company Number: ZA-GENZYME-CERZ-1002674

PATIENT
  Age: 7 Year
  Sex: Female

DRUGS (1)
  1. CEREZYME [Suspect]
     Indication: GAUCHER^S DISEASE
     Route: 042

REACTIONS (4)
  - Respiratory failure [Fatal]
  - Convulsion [Fatal]
  - Apallic syndrome [Fatal]
  - Pneumonia [Fatal]
